FAERS Safety Report 4525969-6 (Version None)
Quarter: 2004Q4

REPORT INFORMATION
  Report Type: 
  Country: None (occurrence: None)
  Receive Date: 20041213
  Receipt Date: 20041213
  Transmission Date: 20050328
  Serious: Yes (Other)
  Sender: FDA-Public Use
  Company Number: None

PATIENT
  Age: 35 Year
  Sex: Female
  Weight: 105.2345 kg

DRUGS (2)
  1. LUPRON [Suspect]
     Dosage: 3.75   ONCE A MONTH  INTRAMUSCULAR
     Route: 030
     Dates: start: 20040101, end: 20040130
  2. LUPRON [Suspect]
     Dosage: 3.75   ONCE A MONTH  INTRAMUSCULAR
     Route: 030
     Dates: start: 20040201, end: 20040228

REACTIONS (7)
  - ALOPECIA [None]
  - ARTHRALGIA [None]
  - CHEST PAIN [None]
  - GASTRITIS [None]
  - MYALGIA [None]
  - NAUSEA [None]
  - PALPITATIONS [None]
